FAERS Safety Report 4514134-4 (Version None)
Quarter: 2004Q4

REPORT INFORMATION
  Report Type: 
  Country: None (occurrence: None)
  Receive Date: 20041124
  Receipt Date: 20041116
  Transmission Date: 20050328
  Serious: No
  Sender: FDA-Public Use
  Company Number: 2004PK01971

PATIENT
  Sex: Male

DRUGS (1)
  1. BELOC ZOK [Suspect]
     Dosage: 95 MG DAILY PO
     Route: 048

REACTIONS (1)
  - PEYRONIE'S DISEASE [None]
